FAERS Safety Report 4369741-9 (Version None)
Quarter: 2004Q2

REPORT INFORMATION
  Report Type: 
  Country: None (occurrence: None)
  Receive Date: 20040528
  Receipt Date: 20040519
  Transmission Date: 20050107
  Serious: Yes (Other)
  Sender: FDA-Public Use
  Company Number: 2004033981

PATIENT
  Age: 64 Year
  Sex: Male
  Weight: 74.8435 kg

DRUGS (2)
  1. LIPITOR [Suspect]
     Indication: BLOOD CHOLESTEROL INCREASED
     Dosage: 10 MG (1 IN 1 D(, ORAL
     Route: 048
     Dates: start: 20030501
  2. ANTIGOUT PREPARATIONS (ANTIGOUT PREPARATIONS) [Concomitant]

REACTIONS (4)
  - MYALGIA [None]
  - PALPITATIONS [None]
  - TREATMENT NONCOMPLIANCE [None]
  - VENTRICULAR EXTRASYSTOLES [None]
